FAERS Safety Report 4337097-3 (Version None)
Quarter: 2004Q1

REPORT INFORMATION
  Report Type: 
  Country: None (occurrence: None)
  Receive Date: 20040329
  Receipt Date: 20031126
  Transmission Date: 20041129
  Serious: No
  Sender: FDA-Public Use
  Company Number: USA031253520

PATIENT
  Age: 12 Year
  Sex: Male

DRUGS (2)
  1. STRATTERA [Suspect]
     Indication: ATTENTION DEFICIT/HYPERACTIVITY DISORDER
     Dosage: 40 MG/DAY
     Dates: start: 20030701
  2. ALBUTEROL [Concomitant]

REACTIONS (2)
  - DYSPEPSIA [None]
  - GASTROOESOPHAGEAL REFLUX DISEASE [None]
